FAERS Safety Report 13777100 (Version 2)
Quarter: 2017Q4

REPORT INFORMATION
  Report Type: Spontaneous
  Country: US (occurrence: US)
  Receive Date: 20170720
  Receipt Date: 20171012
  Transmission Date: 20180320
  Serious: Yes (Hospitalization, Other)
  Sender: FDA-Public Use
  Company Number: US-ASTRAZENECA-2017SE73435

PATIENT
  Age: 582 Month
  Sex: Female
  Weight: 50.8 kg

DRUGS (4)
  1. PROAIR HFA [Concomitant]
     Active Substance: ALBUTEROL SULFATE
     Indication: ADJUVANT THERAPY
     Dosage: AS REQUIRED
     Route: 055
     Dates: start: 2014
  2. ALBUTEROL NEBULIZER [Concomitant]
     Active Substance: ALBUTEROL
     Dosage: TWO TIMES A DAY
     Route: 055
     Dates: start: 201609
  3. SYMBICORT [Suspect]
     Active Substance: BUDESONIDE\FORMOTEROL FUMARATE DIHYDRATE
     Indication: ASTHMA
     Dosage: 160/4.5 MCG TWO PUFFS TWICE DAILY
     Route: 055
     Dates: start: 2014
  4. OXYGEN. [Concomitant]
     Active Substance: OXYGEN
     Indication: SLEEP DISORDER THERAPY
     Route: 045

REACTIONS (8)
  - Lung neoplasm malignant [Unknown]
  - Intentional device misuse [Unknown]
  - Nasopharyngitis [Unknown]
  - Dyspnoea [Unknown]
  - Drug dose omission [Unknown]
  - Product quality issue [Unknown]
  - Pleural effusion [Recovering/Resolving]
  - Emphysema [Recovering/Resolving]

NARRATIVE: CASE EVENT DATE: 201605
